FAERS Safety Report 12215354 (Version 2)
Quarter: 2016Q2

REPORT INFORMATION
  Report Type: Spontaneous
  Country: CZ (occurrence: CZ)
  Receive Date: 20160328
  Receipt Date: 20160412
  Transmission Date: 20160815
  Serious: Yes (Hospitalization, Other)
  Sender: FDA-Public Use
  Company Number: CZ-TEVA-644392ISR

PATIENT
  Age: 82 Year
  Sex: Female

DRUGS (15)
  1. FUROSEMID 40 MG [Suspect]
     Active Substance: FUROSEMIDE
     Dosage: 40 MILLIGRAM DAILY;
     Route: 048
  2. ISOSORBID 20 MG [Suspect]
     Active Substance: ISOSORBIDE
     Dosage: 40 MILLIGRAM DAILY;
     Route: 048
  3. TIAPRID 100 MG [Suspect]
     Active Substance: TIAPRIDE
     Dosage: 100 MILLIGRAM DAILY;
     Route: 048
  4. FENTANYL 25 MCG/H ACTAVIS [Suspect]
     Active Substance: FENTANYL
     Route: 062
  5. METAMIZOL 500 MG [Suspect]
     Active Substance: METAMIZOLE
     Dosage: 3000 MILLIGRAM DAILY;
     Route: 048
  6. RIVOXABAN 20 MG [Suspect]
     Active Substance: RIVAROXABAN
     Dosage: 20 MILLIGRAM DAILY;
     Route: 048
  7. CHLORTALIDON/AMILORID 25 MG/2.5 MG [Suspect]
     Active Substance: AMILORIDE HYDROCHLORIDE\CHLORTHALIDONE
     Dosage: 2 DOSAGE FORMS DAILY;
     Route: 048
  8. ESCITALOPRAM [Suspect]
     Active Substance: ESCITALOPRAM OXALATE
     Dosage: 10 MILLIGRAM DAILY;
     Route: 048
  9. OMEPRAZOL 20 MG [Suspect]
     Active Substance: OMEPRAZOLE
     Dosage: 20 MILLIGRAM DAILY;
     Route: 048
  10. LEVOTHYROXIN 75 MCG UNKNOWN [Suspect]
     Active Substance: LEVOTHYROXINE
     Dosage: 75 MICROGRAM DAILY;
     Route: 048
  11. NITRENDIPIN 10 MG [Suspect]
     Active Substance: NITRENDIPINE
     Dosage: 10 MILLIGRAM DAILY;
     Route: 048
  12. TRAMADOL 150 MG SR [Suspect]
     Active Substance: TRAMADOL
     Dosage: 300 MILLIGRAM DAILY;
     Route: 048
  13. BROMAZEPAM 3 MG [Suspect]
     Active Substance: BROMAZEPAM
     Dosage: .5 DOSAGE FORMS DAILY;
     Route: 048
  14. ATORVASTATIN [Suspect]
     Active Substance: ATORVASTATIN
     Dosage: 10 MILLIGRAM DAILY;
     Route: 048
  15. PERINDOPRIL 5 MG [Suspect]
     Active Substance: PERINDOPRIL
     Dosage: 10 MILLIGRAM DAILY;
     Route: 048

REACTIONS (4)
  - Dehydration [Unknown]
  - Fall [Unknown]
  - Hyponatraemia [Unknown]
  - Chest wall haematoma [Unknown]
